FAERS Safety Report 10600264 (Version 2)
Quarter: 2014Q4

REPORT INFORMATION
  Report Type: Spontaneous
  Country: ZA (occurrence: ZA)
  Receive Date: 20141123
  Receipt Date: 20141123
  Transmission Date: 20150529
  Serious: Yes (Hospitalization, Other)
  Sender: FDA-Public Use
  Company Number: ZA-009507513-1411ZAF005991

PATIENT
  Age: 21 Year
  Sex: Female

DRUGS (3)
  1. EPILIM [Concomitant]
     Active Substance: VALPROATE SODIUM
     Dosage: 500 MG, BID
  2. IMPLANON [Suspect]
     Active Substance: ETONOGESTREL
     Dosage: UNK
     Route: 059
     Dates: start: 20140614, end: 20141107
  3. VITAMINS (UNSPECIFIED) [Concomitant]
     Active Substance: VITAMINS
     Dosage: UNK, QD

REACTIONS (7)
  - Malaise [Unknown]
  - Epilepsy [Recovered/Resolved]
  - Aura [Unknown]
  - Headache [Unknown]
  - Epilepsy [Recovered/Resolved]
  - Epilepsy [Recovered/Resolved]
  - Palpitations [Unknown]

NARRATIVE: CASE EVENT DATE: 2014
